FAERS Safety Report 15397673 (Version 1)
Quarter: 2018Q3

REPORT INFORMATION
  Report Type: Spontaneous
  Country: US (occurrence: US)
  Receive Date: 20180913
  Receipt Date: 20180913
  Transmission Date: 20181010
  Serious: Yes (Hospitalization, Other)
  Sender: FDA-Public Use
  Company Number: None

PATIENT
  Age: 80 Year
  Sex: Male
  Weight: 56.25 kg

DRUGS (2)
  1. GABAPENTIN. [Suspect]
     Active Substance: GABAPENTIN
     Indication: PAIN
     Route: 048
     Dates: start: 20180910, end: 20180910
  2. VALACYCLOVIR [Suspect]
     Active Substance: VALACYCLOVIR HYDROCHLORIDE
     Indication: HERPES ZOSTER
     Route: 048
     Dates: start: 20180910, end: 20180911

REACTIONS (8)
  - Hypoaesthesia [None]
  - Hallucination, visual [None]
  - Cerebrovascular accident [None]
  - Emotional distress [None]
  - Dysarthria [None]
  - Dizziness [None]
  - Anxiety [None]
  - Confusional state [None]

NARRATIVE: CASE EVENT DATE: 20180912
